FAERS Safety Report 21920244 (Version 1)
Quarter: 2023Q1

REPORT INFORMATION
  Report Type: Report from Study
  Country: CO (occurrence: None)
  Receive Date: 20230127
  Receipt Date: 20230127
  Transmission Date: 20230417
  Serious: Yes (Other)
  Sender: FDA-Public Use
  Company Number: 2023A020389

PATIENT
  Age: 26692 Day
  Sex: Female
  Weight: 64 kg

DRUGS (1)
  1. SYMBICORT [Suspect]
     Active Substance: BUDESONIDE\FORMOTEROL FUMARATE DIHYDRATE
     Indication: Asthma
     Dosage: 320.9UG/INHAL, EVERY 12 HOURS320.9UG/INHAL EVERY 12 HOURS
     Route: 055
     Dates: start: 20161115

REACTIONS (2)
  - Pulmonary hypertension [Not Recovered/Not Resolved]
  - Dizziness [Not Recovered/Not Resolved]

NARRATIVE: CASE EVENT DATE: 20230112
